FAERS Safety Report 18392183 (Version 10)
Quarter: 2025Q1

REPORT INFORMATION
  Report Type: Report from Study
  Country: US (occurrence: US)
  Receive Date: 20201016
  Receipt Date: 20250204
  Transmission Date: 20250409
  Serious: No
  Sender: TAKEDA
  Company Number: US-SHIRE-US202033945

PATIENT
  Sex: Male
  Weight: 119 kg

DRUGS (35)
  1. HUMAN IMMUNOGLOBULIN G\HYALURONIDASE RECOMBINANT HUMAN [Suspect]
     Active Substance: HUMAN IMMUNOGLOBULIN G\HYALURONIDASE (HUMAN RECOMBINANT)
     Indication: Immunodeficiency common variable
     Dosage: 55 GRAM, Q4WEEKS
     Dates: start: 20170818
  2. HUMAN IMMUNOGLOBULIN G\HYALURONIDASE RECOMBINANT HUMAN [Suspect]
     Active Substance: HUMAN IMMUNOGLOBULIN G\HYALURONIDASE (HUMAN RECOMBINANT)
     Dosage: 50 GRAM, Q4WEEKS
  3. DIPHENHYDRAMINE [Concomitant]
     Active Substance: DIPHENHYDRAMINE
  4. METOPROLOL SUCCINATE [Concomitant]
     Active Substance: METOPROLOL SUCCINATE
  5. FUROSEMIDE [Concomitant]
     Active Substance: FUROSEMIDE
  6. CIPROFLOXACIN HYDROCHLORIDE [Concomitant]
     Active Substance: CIPROFLOXACIN HYDROCHLORIDE
  7. ATORVASTATIN CALCIUM [Concomitant]
     Active Substance: ATORVASTATIN CALCIUM
  8. PREDNISONE [Concomitant]
     Active Substance: PREDNISONE
  9. OMEPRAZOLE [Concomitant]
     Active Substance: OMEPRAZOLE
  10. TEMAZEPAM [Concomitant]
     Active Substance: TEMAZEPAM
  11. ASPIRIN [Concomitant]
     Active Substance: ASPIRIN
  12. ATORVASTATIN [Concomitant]
     Active Substance: ATORVASTATIN
     Indication: Product used for unknown indication
  13. ACETAMINOPHEN [Concomitant]
     Active Substance: ACETAMINOPHEN
  14. IRBESARTAN [Concomitant]
     Active Substance: IRBESARTAN
  15. POTASSIUM CHLORIDE [Concomitant]
     Active Substance: POTASSIUM CHLORIDE
  16. ADVAIR HFA [Concomitant]
     Active Substance: FLUTICASONE PROPIONATE\SALMETEROL XINAFOATE
  17. MONTELUKAST [Concomitant]
     Active Substance: MONTELUKAST
  18. LIDOCAINE [Concomitant]
     Active Substance: LIDOCAINE
  19. SODIUM CHLORIDE [Concomitant]
     Active Substance: SODIUM CHLORIDE
  20. EPINEPHRINE [Concomitant]
     Active Substance: EPINEPHRINE
  21. MUCINEX [Concomitant]
     Active Substance: GUAIFENESIN
  22. TAMSULOSIN [Concomitant]
     Active Substance: TAMSULOSIN
  23. METOPROLOL [Concomitant]
     Active Substance: METOPROLOL
  24. DIPHENHYDRAMINE HYDROCHLORIDE [Concomitant]
     Active Substance: DIPHENHYDRAMINE HYDROCHLORIDE
  25. MONTELUKAST SODIUM [Concomitant]
     Active Substance: MONTELUKAST SODIUM
  26. TAMSULOSIN HYDROCHLORIDE [Concomitant]
     Active Substance: TAMSULOSIN HYDROCHLORIDE
  27. CIPROFLOXACIN [Concomitant]
     Active Substance: CIPROFLOXACIN
  28. BUDESONIDE\FORMOTEROL FUMARATE [Concomitant]
     Active Substance: BUDESONIDE\FORMOTEROL FUMARATE
  29. ALBUTEROL SULFATE [Concomitant]
     Active Substance: ALBUTEROL SULFATE
  30. SULFAMETHOXAZOLE\TRIMETHOPRIM [Concomitant]
     Active Substance: SULFAMETHOXAZOLE\TRIMETHOPRIM
  31. TIZANIDINE HYDROCHLORIDE [Concomitant]
     Active Substance: TIZANIDINE HYDROCHLORIDE
  32. CARVEDILOL [Concomitant]
     Active Substance: CARVEDILOL
  33. TELMISARTAN HYDROCHLOROTHIAZIDE TEVA [Concomitant]
  34. ESCITALOPRAM OXALATE [Concomitant]
     Active Substance: ESCITALOPRAM OXALATE
  35. AMLODIPINE BESYLATE [Concomitant]
     Active Substance: AMLODIPINE BESYLATE

REACTIONS (17)
  - Glucose tolerance impaired [Unknown]
  - Inflammation [Unknown]
  - Haemorrhage subcutaneous [Not Recovered/Not Resolved]
  - Weight increased [Unknown]
  - Nasopharyngitis [Unknown]
  - Nasal polyps [Unknown]
  - Incision site swelling [Recovered/Resolved]
  - Infusion site discharge [Unknown]
  - COVID-19 [Recovered/Resolved]
  - Product use issue [Unknown]
  - Product dose omission issue [Unknown]
  - Nasal congestion [Recovered/Resolved]
  - Infusion site haemorrhage [Recovered/Resolved]
  - Abdominal distension [Unknown]
  - Infusion site warmth [Recovered/Resolved]
  - Infusion site discomfort [Unknown]
  - Infusion site erythema [Recovered/Resolved]
